FAERS Safety Report 6554288-1 (Version None)
Quarter: 2010Q1

REPORT INFORMATION
  Report Type: 
  Country: None (occurrence: None)
  Receive Date: 20100125
  Receipt Date: 20100125
  Transmission Date: 20100710
  Serious: Yes (Hospitalization)
  Sender: FDA-Public Use
  Company Number: None

PATIENT
  Age: 26 Year
  Sex: Female
  Weight: 68.0396 kg

DRUGS (1)
  1. YAZ [Suspect]
     Dosage: 1 TAB NIGHTLY PO
     Route: 048
     Dates: start: 20060103, end: 20090904

REACTIONS (1)
  - GALLBLADDER DISORDER [None]
